FAERS Safety Report 16667307 (Version 2)
Quarter: 2019Q3

REPORT INFORMATION
  Report Type: Report from Study
  Country: JP (occurrence: JP)
  Receive Date: 20190805
  Receipt Date: 20190827
  Transmission Date: 20191004
  Serious: No
  Sender: FDA-Public Use
  Company Number: JP-ACTELION-A-CH2019-185202

PATIENT
  Age: 11 Year
  Sex: Female
  Weight: 38.3 kg

DRUGS (8)
  1. OPSUMIT [Suspect]
     Active Substance: MACITENTAN
     Dosage: 10 MG, QD
     Route: 048
     Dates: start: 20181016
  2. OPSUMIT [Suspect]
     Active Substance: MACITENTAN
     Dosage: 5 MG, QD
     Route: 048
     Dates: start: 20180926, end: 20181004
  3. UPTRAVI [Suspect]
     Active Substance: SELEXIPAG
     Indication: PULMONARY ARTERIAL HYPERTENSION
     Dosage: 0.4 - 2.2 MG, QD
     Route: 048
     Dates: start: 20180911
  4. OPSUMIT [Suspect]
     Active Substance: MACITENTAN
     Dosage: 7.5 MG, QD
     Route: 048
     Dates: start: 20181005, end: 20181015
  5. OXYGEN. [Concomitant]
     Active Substance: OXYGEN
  6. RIOCIGUAT. [Concomitant]
     Active Substance: RIOCIGUAT
  7. FLOLAN [Concomitant]
     Active Substance: EPOPROSTENOL SODIUM
  8. OPSUMIT [Suspect]
     Active Substance: MACITENTAN
     Indication: PULMONARY ARTERIAL HYPERTENSION
     Dosage: 2.5 MG, QD
     Route: 048
     Dates: start: 20180913, end: 20180925

REACTIONS (4)
  - Mass [Not Recovered/Not Resolved]
  - Nausea [Recovering/Resolving]
  - Pericardial effusion [Recovering/Resolving]
  - Vomiting [Recovering/Resolving]

NARRATIVE: CASE EVENT DATE: 20180916
